FAERS Safety Report 6243327-3 (Version None)
Quarter: 2009Q2

REPORT INFORMATION
  Report Type: 
  Country: None (occurrence: None)
  Receive Date: 20090624
  Receipt Date: 20090620
  Transmission Date: 20091009
  Serious: Yes (Hospitalization, Other)
  Sender: FDA-Public Use
  Company Number: BE-AMGEN-UK346829

PATIENT
  Sex: Female
  Weight: 83 kg

DRUGS (7)
  1. ARANESP [Suspect]
     Indication: ANAEMIA OF MALIGNANT DISEASE
     Route: 058
     Dates: start: 20080909, end: 20090113
  2. ZOFRAN [Concomitant]
     Route: 048
  3. PYRIDOXIN [Concomitant]
     Route: 048
  4. LITICAN [Concomitant]
     Route: 048
  5. NEULASTA [Concomitant]
     Route: 058
  6. CARBOPLATIN [Concomitant]
     Route: 042
     Dates: start: 20080812, end: 20090113
  7. CAELYX [Concomitant]
     Route: 042
     Dates: start: 20080812, end: 20090113

REACTIONS (3)
  - ANAEMIA [None]
  - APLASIA [None]
  - MYELODYSPLASTIC SYNDROME [None]
